FAERS Safety Report 7384606-6 (Version None)
Quarter: 2011Q1

REPORT INFORMATION
  Report Type: 
  Country: None (occurrence: None)
  Receive Date: 20110330
  Receipt Date: 20110322
  Transmission Date: 20110831
  Serious: Yes (Other)
  Sender: FDA-Public Use
  Company Number: US-AMGEN-USASP2011015581

PATIENT
  Age: 32 Year
  Sex: Male

DRUGS (1)
  1. ENBREL [Suspect]
     Indication: ANKYLOSING SPONDYLITIS
     Dates: start: 20090109

REACTIONS (6)
  - JOINT INJURY [None]
  - SINUS DISORDER [None]
  - HEADACHE [None]
  - SINUSITIS [None]
  - RECTAL HAEMORRHAGE [None]
  - NASAL SEPTUM DEVIATION [None]
